FAERS Safety Report 5637932-2 (Version None)
Quarter: 2008Q1

REPORT INFORMATION
  Report Type: 
  Country: None (occurrence: None)
  Receive Date: 20080221
  Receipt Date: 20080206
  Transmission Date: 20080703
  Serious: Yes (Hospitalization)
  Sender: FDA-Public Use
  Company Number: 158715

PATIENT
  Age: 43 Year
  Sex: Female

DRUGS (1)
  1. AVONEX [Suspect]
     Indication: MULTIPLE SCLEROSIS
     Dosage: 30 UG; QW; IM
     Route: 030
     Dates: start: 20000526, end: 20021201

REACTIONS (8)
  - ASTHENIA [None]
  - BACTERIAL INFECTION [None]
  - COLOSTOMY [None]
  - INJURY [None]
  - INTERVERTEBRAL DISC DEGENERATION [None]
  - NECROTISING FASCIITIS [None]
  - SKIN GRAFT [None]
  - UNEVALUABLE EVENT [None]
